FAERS Safety Report 22257547 (Version 2)
Quarter: 2023Q2

REPORT INFORMATION
  Report Type: Spontaneous
  Country: CN (occurrence: CN)
  Receive Date: 20230427
  Receipt Date: 20230505
  Transmission Date: 20230722
  Serious: Yes (Death, Life-Threatening, Hospitalization, Other)
  Sender: FDA-Public Use
  Company Number: CN-MLMSERVICE-20230417-4230255-1

PATIENT
  Age: 3 Year
  Sex: Male

DRUGS (1)
  1. GLYBURIDE [Suspect]
     Active Substance: GLYBURIDE
     Dosage: UNK
     Route: 048

REACTIONS (22)
  - Brain injury [Fatal]
  - Brain herniation [Fatal]
  - Pupillary reflex impaired [Fatal]
  - Anisocoria [Fatal]
  - Brain oedema [Fatal]
  - Multiple organ dysfunction syndrome [Fatal]
  - Hypoglycaemic coma [Fatal]
  - Status epilepticus [Fatal]
  - Hypoglycaemic seizure [Fatal]
  - Loss of consciousness [Fatal]
  - Anal incontinence [Fatal]
  - Staring [Fatal]
  - Gaze palsy [Fatal]
  - Muscle twitching [Fatal]
  - Posture abnormal [Fatal]
  - Tremor [Fatal]
  - Hypertonia [Fatal]
  - Musculoskeletal discomfort [Fatal]
  - Hypoglycaemia [Fatal]
  - Toxicity to various agents [Fatal]
  - Accidental exposure to product by child [Fatal]
  - Cyanosis [Fatal]
